FAERS Safety Report 8407219 (Version 2)
Quarter: 2013Q2

REPORT INFORMATION
  Report Type: Spontaneous
  Country: US (occurrence: None)
  Receive Date: 20111227
  Receipt Date: 20120426
  Transmission Date: 20140414
  Serious: Yes (Other)
  Sender: FDA-Public Use
  Company Number: PHEH2011US05744

PATIENT
  Age: 41 Year
  Sex: Female
  Weight: 124.7 kg

DRUGS (1)
  1. GILENYA [Suspect]
     Indication: MULTIPLE SCLEROSIS
     Dosage: 0.5 MG, QD, ORAL
     Route: 048
     Dates: start: 20110920

REACTIONS (9)
  - TONGUE BLISTERING [None]
  - AGEUSIA [None]
  - GLOSSODYNIA [None]
  - HEART RATE INCREASED [None]
  - MALAISE [None]
  - FATIGUE [None]
  - PARAESTHESIA ORAL [None]
  - INFLUENZA [None]
  - HEADACHE [None]
